FAERS Safety Report 16325531 (Version 1)
Quarter: 2019Q2

REPORT INFORMATION
  Report Type: Spontaneous
  Country: US (occurrence: US)
  Receive Date: 20190516
  Receipt Date: 20190516
  Transmission Date: 20190711
  Serious: Yes (Other)
  Sender: FDA-Public Use
  Company Number: None

PATIENT
  Age: 34 Year
  Sex: Male
  Weight: 60 kg

DRUGS (1)
  1. AMBISOME [Suspect]
     Active Substance: AMPHOTERICIN B
     Indication: RESPIRATORY TRACT INFECTION FUNGAL
     Dosage: ?          OTHER FREQUENCY:DAILY --} 3 D/WEEK;?
     Route: 042
     Dates: start: 20190128, end: 20190220

REACTIONS (5)
  - Incorrect drug administration rate [None]
  - Back pain [None]
  - Dyspnoea [None]
  - Blood pressure systolic increased [None]
  - Headache [None]

NARRATIVE: CASE EVENT DATE: 20190218
